FAERS Safety Report 6332715-2 (Version None)
Quarter: 2009Q3

REPORT INFORMATION
  Report Type: 
  Country: None (occurrence: None)
  Receive Date: 20090828
  Receipt Date: 20090817
  Transmission Date: 20100115
  Serious: Yes (Hospitalization)
  Sender: FDA-Public Use
  Company Number: US-NOVOPROD-290852

PATIENT
  Age: 18 Year
  Sex: Male

DRUGS (1)
  1. NOVOLOG MIX 70/30 [Suspect]
     Indication: TYPE 1 DIABETES MELLITUS
     Dosage: 60 IU, BID

REACTIONS (3)
  - BLOOD GLUCOSE DECREASED [None]
  - DYSARTHRIA [None]
  - HEMIPLEGIA [None]
